FAERS Safety Report 17908570 (Version 1)
Quarter: 2020Q2

REPORT INFORMATION
  Report Type: Spontaneous
  Country: LT (occurrence: LT)
  Receive Date: 20200617
  Receipt Date: 20200617
  Transmission Date: 20200714
  Serious: Yes (Other)
  Sender: FDA-Public Use
  Company Number: LT-PFIZER INC-2020230775

PATIENT
  Age: 33 Year
  Sex: Female

DRUGS (8)
  1. HUMIRA [Suspect]
     Active Substance: ADALIMUMAB
     Indication: SPONDYLITIS
  2. METHYLPREDNISOLONE. [Suspect]
     Active Substance: METHYLPREDNISOLONE
     Indication: ARTHRITIS REACTIVE
     Dosage: 32 MG, DAILY (16 + 16 MG)
  3. METHYLPREDNISOLONE. [Suspect]
     Active Substance: METHYLPREDNISOLONE
     Dosage: 40 MG, DAILY (16 + 8 +16 MG PER DAY)
  4. HUMIRA [Suspect]
     Active Substance: ADALIMUMAB
     Indication: ARTHRITIS REACTIVE
     Dosage: 40 MG, EVERY 2 WEEKS
     Route: 058
  5. HUMIRA [Suspect]
     Active Substance: ADALIMUMAB
     Indication: SACROILIITIS
  6. PREDNISOLONE. [Suspect]
     Active Substance: PREDNISOLONE
     Indication: ARTHRITIS REACTIVE
     Dosage: 10 MG, 2X/DAY
  7. CEFUROXIME. [Suspect]
     Active Substance: CEFUROXIME
     Indication: INFLAMMATION
     Dosage: 500 MG, 2X/DAY (EVERY 12H)
  8. HUMIRA [Suspect]
     Active Substance: ADALIMUMAB
     Indication: DACTYLITIS

REACTIONS (2)
  - Cushing^s syndrome [Unknown]
  - Drug ineffective [Unknown]
